FAERS Safety Report 22586028 (Version 1)
Quarter: 2023Q2

REPORT INFORMATION
  Report Type: Spontaneous
  Country: US (occurrence: US)
  Receive Date: 20230610
  Receipt Date: 20230610
  Transmission Date: 20230722
  Serious: Yes (Other)
  Sender: FDA-Public Use
  Company Number: US-BAXTER-2023BAX023455

PATIENT
  Sex: Female

DRUGS (2)
  1. DOXIL [Suspect]
     Active Substance: DOXORUBICIN HYDROCHLORIDE
     Indication: Malignant peritoneal neoplasm
     Dosage: 8 TREATMENTS EVERY 3 WEEKS, 3RD ROUND OF TREATMENT; STOP DATE: UNKNOWN, STOPPED AFTER 8 ROUNDS OF DO
     Route: 065
     Dates: start: 20091223
  2. DOXIL [Suspect]
     Active Substance: DOXORUBICIN HYDROCHLORIDE
     Dosage: 9 TREATMENTS OF DOXIL (1 DOSE OF 40MG AND 8 DOSES OF 38MG) IN 2010
     Route: 065

REACTIONS (4)
  - Squamous cell carcinoma of the tongue [Recovered/Resolved]
  - Malignant peritoneal neoplasm [Not Recovered/Not Resolved]
  - Disease recurrence [Not Recovered/Not Resolved]
  - Oropharyngeal scar [Unknown]
